FAERS Safety Report 6637420-0 (Version None)
Quarter: 2010Q1

REPORT INFORMATION
  Report Type: 
  Country: None (occurrence: None)
  Receive Date: 20100311
  Receipt Date: 20100224
  Transmission Date: 20100710
  Serious: Yes (Other)
  Sender: FDA-Public Use
  Company Number: 2010000687

PATIENT
  Age: 81 Year
  Sex: Male
  Weight: 47 kg

DRUGS (2)
  1. ERLOTINIB HYDROCHLORIDE [Suspect]
     Indication: LUNG ADENOCARCINOMA
     Dosage: (50 MG,QD),ORAL ; (25 MG,QD),ORAL
     Route: 048
     Dates: start: 20090116, end: 20090129
  2. ERLOTINIB HYDROCHLORIDE [Suspect]
     Indication: LUNG ADENOCARCINOMA
     Dosage: (50 MG,QD),ORAL ; (25 MG,QD),ORAL
     Route: 048
     Dates: start: 20081115

REACTIONS (1)
  - ILEUS [None]
